FAERS Safety Report 12310621 (Version 1)
Quarter: 2016Q2

REPORT INFORMATION
  Report Type: Report from Study
  Country: IL (occurrence: IL)
  Receive Date: 20160427
  Receipt Date: 20160427
  Transmission Date: 20160815
  Serious: Yes (Other)
  Sender: FDA-Public Use
  Company Number: IL-JNJFOC-20160422143

PATIENT
  Age: 47 Year
  Sex: Female

DRUGS (3)
  1. PERMIXON [Concomitant]
     Active Substance: SAW PALMETTO
     Route: 065
  2. METHOTREXATE [Concomitant]
     Active Substance: METHOTREXATE
     Route: 065
  3. SIMPONI [Suspect]
     Active Substance: GOLIMUMAB
     Indication: RHEUMATOID ARTHRITIS
     Route: 058
     Dates: start: 20140513, end: 20160401

REACTIONS (1)
  - Sepsis [Unknown]
